FAERS Safety Report 22308840 (Version 1)
Quarter: 2023Q2

REPORT INFORMATION
  Report Type: Spontaneous
  Country: US (occurrence: None)
  Receive Date: 20230510
  Receipt Date: 20230510
  Transmission Date: 20230721
  Serious: Yes (Hospitalization)
  Sender: FDA-Public Use
  Company Number: None

PATIENT
  Age: 81 Year
  Sex: Female
  Weight: 60.33 kg

DRUGS (15)
  1. CAPECITABINE [Suspect]
     Active Substance: CAPECITABINE
     Indication: Colon cancer
     Dosage: 1500MG TWICE DAILY ORAL
     Route: 048
     Dates: start: 202303
  2. ALENDRONATE [Concomitant]
  3. CALCIUM CITRATE [Concomitant]
     Active Substance: CALCIUM CITRATE
  4. MAGNESIUM [Concomitant]
     Active Substance: MAGNESIUM
  5. VITAMINS [Concomitant]
     Active Substance: VITAMINS
  6. DILTIAZEM [Concomitant]
     Active Substance: DILTIAZEM
  7. VITAMIN D3 [Concomitant]
     Active Substance: CHOLECALCIFEROL
  8. FERROUS SULFATE [Concomitant]
     Active Substance: FERROUS SULFATE
  9. LEVOTHYROXINE [Concomitant]
     Active Substance: LEVOTHYROXINE
  10. LOPERAMIDE [Concomitant]
     Active Substance: LOPERAMIDE
  11. LOSARTAN [Concomitant]
  12. POTASSIUM CHLORIDE [Concomitant]
     Active Substance: POTASSIUM CHLORIDE
  13. PROAIR HFA [Concomitant]
     Active Substance: ALBUTEROL SULFATE
  14. SIMVASTATIN [Concomitant]
     Active Substance: SIMVASTATIN
  15. XARELTO [Concomitant]
     Active Substance: RIVAROXABAN

REACTIONS (4)
  - Clostridium difficile infection [None]
  - Atrial fibrillation [None]
  - Renal failure [None]
  - Therapy cessation [None]
